FAERS Safety Report 7284419-X (Version None)
Quarter: 2011Q1

REPORT INFORMATION
  Report Type: 
  Country: None (occurrence: None)
  Receive Date: 20110209
  Receipt Date: 20110119
  Transmission Date: 20110831
  Serious: Yes (Other)
  Sender: FDA-Public Use
  Company Number: PHFR2011GB00682

PATIENT
  Sex: Male

DRUGS (1)
  1. CLOZARIL [Suspect]
     Indication: SCHIZOPHRENIA
     Dosage: UNK
     Route: 048
     Dates: start: 20100211

REACTIONS (5)
  - ANGINA PECTORIS [None]
  - GAIT DISTURBANCE [None]
  - CONFUSIONAL STATE [None]
  - ANAEMIA [None]
  - PETIT MAL EPILEPSY [None]
